FAERS Safety Report 16531692 (Version 1)
Quarter: 2019Q3

REPORT INFORMATION
  Report Type: Spontaneous
  Country: GB (occurrence: GB)
  Receive Date: 20190704
  Receipt Date: 20190704
  Transmission Date: 20191004
  Serious: Yes (Disabling, Other)
  Sender: FDA-Public Use
  Company Number: GB-AUROBINDO-AUR-APL-2019-037013

PATIENT

DRUGS (2)
  1. LEVEST [Concomitant]
     Indication: PRODUCT USED FOR UNKNOWN INDICATION
     Dosage: UNK
     Route: 065
  2. MIRTAZAPINE. [Suspect]
     Active Substance: MIRTAZAPINE
     Indication: DEPRESSION SUICIDAL
     Dosage: 15 MILLIGRAM
     Route: 048

REACTIONS (2)
  - Hypersomnia [Recovered/Resolved]
  - Syncope [Recovered/Resolved]
